FAERS Safety Report 4476296-7 (Version None)
Quarter: 2004Q4

REPORT INFORMATION
  Report Type: 
  Country: None (occurrence: None)
  Receive Date: 20041016
  Receipt Date: 20041002
  Transmission Date: 20050328
  Serious: Yes (Death, Hospitalization)
  Sender: FDA-Public Use
  Company Number: BR-MERCK-0410BRA00146

PATIENT
  Age: 47 Year
  Sex: Female

DRUGS (3)
  1. EPOETIN ALFA [Concomitant]
     Route: 065
  2. MORPHINE [Concomitant]
     Route: 065
  3. VIOXX [Suspect]
     Indication: ADNEXA UTERI PAIN
     Route: 048
     Dates: start: 20030301, end: 20040501

REACTIONS (2)
  - MULTI-ORGAN FAILURE [None]
  - OVARIAN CANCER [None]
